FAERS Safety Report 8252239-5 (Version None)
Quarter: 2012Q2

REPORT INFORMATION
  Report Type: 
  Country: None (occurrence: None)
  Receive Date: 20120402
  Receipt Date: 20110901
  Transmission Date: 20120825
  Serious: No
  Sender: FDA-Public Use
  Company Number: US-ABBOTT-11P-163-0851997-00

PATIENT
  Age: 58 Year
  Sex: Male

DRUGS (6)
  1. DIM [Concomitant]
     Indication: ANTIOESTROGEN THERAPY
  2. ANDROGEL [Suspect]
     Indication: BLOOD TESTOSTERONE DECREASED
     Route: 061
     Dates: start: 20100301
  3. ANDROGEL [Suspect]
     Route: 061
  4. ZINC SULFATE [Concomitant]
     Indication: PRODUCT USED FOR UNKNOWN INDICATION
  5. ANDROGEL [Suspect]
     Route: 061
  6. ANDROGEL [Suspect]
     Route: 061

REACTIONS (6)
  - SARCOPENIA [None]
  - BLOOD OESTROGEN INCREASED [None]
  - FEELING ABNORMAL [None]
  - HAEMATOCRIT INCREASED [None]
  - RED BLOOD CELL COUNT INCREASED [None]
  - BLOOD TESTOSTERONE ABNORMAL [None]
